FAERS Safety Report 5295238-8 (Version None)
Quarter: 2007Q2

REPORT INFORMATION
  Report Type: 
  Country: None (occurrence: None)
  Receive Date: 20070412
  Receipt Date: 20070403
  Transmission Date: 20071010
  Serious: Yes (Other)
  Sender: FDA-Public Use
  Company Number: PFIZER INC-2007027434

PATIENT
  Sex: Female
  Weight: 55.8 kg

DRUGS (6)
  1. ZOLOFT [Suspect]
     Indication: NERVOUSNESS
     Dates: start: 20050601, end: 20050706
  2. ZOLOFT [Suspect]
     Indication: TREMOR
  3. GABAPENTIN [Suspect]
     Indication: PARAESTHESIA
     Dates: start: 20061208, end: 20070312
  4. LYRICA [Suspect]
     Indication: PARAESTHESIA
     Dosage: DAILY DOSE:375MG
  5. CLONAZEPAM [Concomitant]
  6. BENADRYL [Concomitant]

REACTIONS (6)
  - DRUG INEFFECTIVE [None]
  - HYPERAESTHESIA [None]
  - INSOMNIA [None]
  - NERVOUS SYSTEM DISORDER [None]
  - PARAESTHESIA [None]
  - WEIGHT INCREASED [None]
